FAERS Safety Report 12268943 (Version 1)
Quarter: 2016Q2

REPORT INFORMATION
  Report Type: Spontaneous
  Country: DE (occurrence: DE)
  Receive Date: 20160414
  Receipt Date: 20160414
  Transmission Date: 20160815
  Serious: Yes (Other)
  Sender: FDA-Public Use
  Company Number: DE-TEVA-649518GER

PATIENT
  Age: 1 Day
  Sex: Male

DRUGS (7)
  1. LITHIUM ^APOGEPHA^ [Concomitant]
     Indication: BIPOLAR DISORDER
     Dosage: DOSAGE UNKNOWN
     Route: 064
  2. L-THYROX 100 [Concomitant]
     Indication: HYPOTHYROIDISM
     Dosage: 100 MICROGRAM DAILY;
     Route: 064
     Dates: start: 20141127, end: 20150825
  3. AKINETON [Concomitant]
     Active Substance: BIPERIDEN HYDROCHLORIDE
     Indication: EXTRAPYRAMIDAL DISORDER
     Dosage: DOSAGE UNKNOWN
     Route: 064
  4. PANTOPRAZOL [Concomitant]
     Active Substance: PANTOPRAZOLE SODIUM
     Indication: PROPHYLAXIS AGAINST GASTROINTESTINAL ULCER
     Dosage: 40 MILLIGRAM DAILY;
     Route: 064
     Dates: start: 20141127, end: 20150825
  5. OLANZAPINE. [Suspect]
     Active Substance: OLANZAPINE
     Indication: BIPOLAR DISORDER
     Dosage: 15 [MG/D ]/ IN THE BEGINNING 10 MG/D, AFTER GW 32+6 15 MG AND 10 MG ALTERNATING
     Route: 064
     Dates: start: 20141127, end: 20150825
  6. FEMIBION [Concomitant]
     Active Substance: VITAMINS
     Indication: PROPHYLAXIS OF NEURAL TUBE DEFECT
     Route: 064
  7. BISOPROLOL [Concomitant]
     Active Substance: BISOPROLOL
     Indication: GESTATIONAL HYPERTENSION
     Dosage: 1.25 MILLIGRAM DAILY;
     Route: 064

REACTIONS (3)
  - Hypoglycaemia neonatal [Recovered/Resolved]
  - Selective eating disorder [Recovered/Resolved]
  - Foetal exposure during pregnancy [Unknown]

NARRATIVE: CASE EVENT DATE: 20150825
